FAERS Safety Report 18474800 (Version 1)
Quarter: 2020Q4

REPORT INFORMATION
  Report Type: Spontaneous
  Country: CA (occurrence: CA)
  Receive Date: 20201106
  Receipt Date: 20201106
  Transmission Date: 20210114
  Serious: Yes (Hospitalization)
  Sender: FDA-Public Use
  Company Number: CA-CELGENEUS-CAN-20201100343

PATIENT
  Age: 74 Year
  Sex: Female

DRUGS (1)
  1. REVLIMID [Suspect]
     Active Substance: LENALIDOMIDE
     Indication: PLASMA CELL MYELOMA
     Dosage: 15 MILLIGRAM
     Route: 048
     Dates: start: 20201022, end: 202010

REACTIONS (4)
  - Vomiting [Unknown]
  - Intestinal obstruction [Unknown]
  - Inguinal hernia [Unknown]
  - Asthenia [Unknown]

NARRATIVE: CASE EVENT DATE: 202010
